FAERS Safety Report 7772427-1 (Version None)
Quarter: 2011Q3

REPORT INFORMATION
  Report Type: 
  Country: None (occurrence: None)
  Receive Date: 20110922
  Receipt Date: 20110719
  Transmission Date: 20111222
  Serious: Yes (Hospitalization)
  Sender: FDA-Public Use
  Company Number: PHBS2010DE00499

PATIENT
  Sex: Male
  Weight: 77 kg

DRUGS (11)
  1. RASILEZ [Suspect]
     Dosage: 300 MG, UNK
     Route: 048
     Dates: start: 20080520
  2. EXFORGE HCT [Suspect]
     Dosage: UNK UKN, UNK
  3. ICANDRA [Suspect]
     Indication: DIABETES MELLITUS
     Dosage: 1000 MG, UNK
     Route: 048
  4. ASPIRIN [Concomitant]
     Indication: CORONARY ARTERY DISEASE
     Dosage: 100 MG, UNK
     Route: 048
     Dates: start: 20080205
  5. AMLODIPINE [Concomitant]
     Indication: HYPERTENSION
     Dosage: 10 MG,/DAY
     Route: 048
     Dates: start: 20080403
  6. CLOPIDOGREL [Concomitant]
     Indication: CORONARY ARTERY DISEASE
     Dosage: 75 MG, UNK
     Route: 048
     Dates: start: 20080205
  7. BISOPROLOL FUMARATE [Concomitant]
     Indication: CORONARY ARTERY DISEASE
     Dosage: UNK UKN, UNK
     Route: 048
     Dates: start: 20080205
  8. ATACAND [Concomitant]
     Indication: HYPERTENSION
     Dosage: 32 MG, UNK
     Route: 048
     Dates: start: 20080403
  9. AMLODIPINE [Concomitant]
     Dosage: UNK UKN, UNK
     Dates: start: 20110504
  10. HYDROCHLOROTHIAZIDE [Suspect]
     Dosage: 25 MG, UNK
     Route: 048
     Dates: start: 20080205
  11. ZODIN [Concomitant]
     Indication: CORONARY ARTERY DISEASE
     Dosage: UNK UKN, UNK
     Route: 048
     Dates: start: 20080430

REACTIONS (1)
  - ANGINA PECTORIS [None]
